FAERS Safety Report 12525304 (Version 1)
Quarter: 2016Q3

REPORT INFORMATION
  Report Type: Spontaneous
  Country: GB (occurrence: GB)
  Receive Date: 20160704
  Receipt Date: 20160704
  Transmission Date: 20161109
  Serious: Yes (Death)
  Sender: FDA-Public Use
  Company Number: GB-JNJFOC-20160626977

PATIENT

DRUGS (1)
  1. SPORANOX [Suspect]
     Active Substance: ITRACONAZOLE
     Indication: SYSTEMIC MYCOSIS
     Dosage: 250 MG IN 25 ML
     Route: 042

REACTIONS (1)
  - Death [Fatal]
